FAERS Safety Report 20354651 (Version 4)
Quarter: 2022Q3

REPORT INFORMATION
  Report Type: Report from Study
  Country: CA (occurrence: CA)
  Receive Date: 20220120
  Receipt Date: 20220805
  Transmission Date: 20221027
  Serious: Yes (Hospitalization, Other)
  Sender: FDA-Public Use
  Company Number: CA-NOVARTISPH-NVSC2021CA214951

PATIENT
  Sex: Female

DRUGS (6)
  1. ELTROMBOPAG OLAMINE [Suspect]
     Active Substance: ELTROMBOPAG OLAMINE
     Indication: Immune thrombocytopenia
     Dosage: 50 MG, QD
     Route: 048
     Dates: start: 20210825
  2. ELTROMBOPAG OLAMINE [Suspect]
     Active Substance: ELTROMBOPAG OLAMINE
     Dosage: 75 MG, QD (25 MG FOR 2 DAYS THE NO REVOLADE THE 3RD DAY
     Route: 048
  3. ELTROMBOPAG OLAMINE [Suspect]
     Active Substance: ELTROMBOPAG OLAMINE
     Dosage: 75 MG, QD
     Route: 048
     Dates: start: 20210825
  4. ELTROMBOPAG OLAMINE [Suspect]
     Active Substance: ELTROMBOPAG OLAMINE
     Dosage: 25 MG (FOR 2 DAYS THE NO REVOLADE THE 3RD DAY)
     Route: 065
     Dates: start: 20220422
  5. ELTROMBOPAG OLAMINE [Suspect]
     Active Substance: ELTROMBOPAG OLAMINE
     Dosage: 50 MG (DAY 4 AND NO REVOLADE ON DAY 5)
     Route: 065
  6. PREDNISONE [Concomitant]
     Active Substance: PREDNISONE
     Indication: Product used for unknown indication
     Dosage: 5 MG
     Route: 065

REACTIONS (22)
  - Eye infection [Unknown]
  - Platelet count decreased [Recovering/Resolving]
  - Fatigue [Unknown]
  - Blood cholesterol abnormal [Unknown]
  - Stress [Unknown]
  - Feeling abnormal [Unknown]
  - Irritable bowel syndrome [Not Recovered/Not Resolved]
  - Abdominal discomfort [Unknown]
  - Decreased appetite [Recovering/Resolving]
  - Abdominal pain upper [Not Recovered/Not Resolved]
  - Headache [Not Recovered/Not Resolved]
  - Gait inability [Unknown]
  - Depression [Recovering/Resolving]
  - Anxiety [Unknown]
  - Gastrointestinal wall thickening [Unknown]
  - Constipation [Not Recovered/Not Resolved]
  - Arthralgia [Unknown]
  - Hepatic enzyme increased [Unknown]
  - Diarrhoea [Recovering/Resolving]
  - Abdominal pain [Not Recovered/Not Resolved]
  - Nausea [Not Recovered/Not Resolved]
  - Platelet count increased [Unknown]
